FAERS Safety Report 10214369 (Version 1)
Quarter: 2014Q2

REPORT INFORMATION
  Report Type: Spontaneous
  Country: US (occurrence: None)
  Receive Date: 20140602
  Receipt Date: 20140602
  Transmission Date: 20141212
  Serious: Yes (Other)
  Sender: FDA-Public Use
  Company Number: None

PATIENT
  Age: 59 Year
  Sex: Female

DRUGS (2)
  1. RECLAST [Suspect]
     Indication: OSTEOPOROSIS
     Route: 042
     Dates: start: 20120928
  2. PROLIA [Suspect]
     Indication: OSTEOPOROSIS
     Route: 058
     Dates: start: 201403

REACTIONS (9)
  - Myalgia [None]
  - Arthralgia [None]
  - Bone pain [None]
  - Muscle contractions involuntary [None]
  - Fatigue [None]
  - Headache [None]
  - Pain in jaw [None]
  - Adverse reaction [None]
  - Condition aggravated [None]
